FAERS Safety Report 6479538-1 (Version None)
Quarter: 2009Q4

REPORT INFORMATION
  Report Type: 
  Country: None (occurrence: None)
  Receive Date: 20091208
  Receipt Date: 20091130
  Transmission Date: 20100525
  Serious: Yes (Disabling)
  Sender: FDA-Public Use
  Company Number: GB-ELI_LILLY_AND_COMPANY-GB200904006540

PATIENT
  Age: 54 Year
  Sex: Female
  Weight: 107 kg

DRUGS (5)
  1. BYETTA [Suspect]
     Indication: DIABETES MELLITUS
     Dosage: 5 UG, UNK
     Route: 058
     Dates: start: 20090318
  2. IRBESARTAN [Concomitant]
     Indication: BLOOD PRESSURE INCREASED
     Dosage: 300 MG, DAILY (1/D)
     Route: 048
     Dates: start: 20090317
  3. METFORMIN HCL [Concomitant]
     Indication: DIABETES MELLITUS
     Dosage: 1 G, 2/D
     Route: 048
     Dates: start: 20090313
  4. NOVOMIX                            /01475801/ [Concomitant]
     Route: 058
  5. SIMVASTATIN [Concomitant]
     Indication: BLOOD CHOLESTEROL INCREASED
     Dosage: 20 MG, DAILY (1/D)
     Dates: start: 20090313

REACTIONS (3)
  - DRY SKIN [None]
  - NAUSEA [None]
  - PAROSMIA [None]
